FAERS Safety Report 19600967 (Version 16)
Quarter: 2022Q3

REPORT INFORMATION
  Report Type: Spontaneous
  Country: US (occurrence: US)
  Receive Date: 20210723
  Receipt Date: 20220824
  Transmission Date: 20221027
  Serious: Yes (Hospitalization, Other)
  Sender: FDA-Public Use
  Company Number: US-SA-SAC20210722001043

PATIENT
  Age: 45 Year
  Sex: Female

DRUGS (5)
  1. FABRAZYME [Suspect]
     Active Substance: AGALSIDASE BETA
     Indication: Fabry^s disease
     Dosage: 150 MG, QOW
     Route: 041
     Dates: start: 2019
  2. FABRAZYME [Suspect]
     Active Substance: AGALSIDASE BETA
     Indication: Complement deficiency disease
     Dosage: 150 MG, QOW
     Route: 041
     Dates: start: 202105, end: 20220131
  3. FABRAZYME [Suspect]
     Active Substance: AGALSIDASE BETA
     Dosage: 150 MG, QOW
     Route: 041
     Dates: start: 2022
  4. FABRAZYME [Suspect]
     Active Substance: AGALSIDASE BETA
     Dosage: 140 MG, QOW
     Route: 042
     Dates: start: 202206
  5. LYRICA [Concomitant]
     Active Substance: PREGABALIN
     Dosage: 150 MG, BID
     Dates: start: 202201

REACTIONS (11)
  - Neurosarcoidosis [Not Recovered/Not Resolved]
  - Hospitalisation [Unknown]
  - Therapeutic procedure [Unknown]
  - Hysterectomy [Unknown]
  - Illness [Unknown]
  - Disease progression [Unknown]
  - Catheter site bruise [Unknown]
  - Poor venous access [Unknown]
  - Intentional dose omission [Unknown]
  - Product dose omission issue [Unknown]
  - Product use in unapproved indication [Unknown]

NARRATIVE: CASE EVENT DATE: 20210719
